FAERS Safety Report 23862406 (Version 1)
Quarter: 2024Q2

REPORT INFORMATION
  Report Type: Report from Study
  Country: US (occurrence: US)
  Receive Date: 20240516
  Receipt Date: 20240516
  Transmission Date: 20240716
  Serious: Yes (Hospitalization, Other)
  Sender: FDA-Public Use
  Company Number: US-ARGENX-2024-ARGX-US003145

PATIENT

DRUGS (1)
  1. VYVGART [Suspect]
     Active Substance: EFGARTIGIMOD ALFA-FCAB
     Indication: Product used for unknown indication
     Dosage: UNK
     Route: 042
     Dates: end: 20240329

REACTIONS (7)
  - Pulmonary oedema [Unknown]
  - Rales [Unknown]
  - Salivary hypersecretion [Unknown]
  - Dysphagia [Unknown]
  - Muscle atrophy [Unknown]
  - Joint stiffness [Unknown]
  - Myalgia [Unknown]
